FAERS Safety Report 8298119-0 (Version None)
Quarter: 2012Q2

REPORT INFORMATION
  Report Type: 
  Country: None (occurrence: None)
  Receive Date: 20120419
  Receipt Date: 20120416
  Transmission Date: 20120825
  Serious: Yes (Death)
  Sender: FDA-Public Use
  Company Number: US-ROCHE-1036687

PATIENT
  Sex: Female
  Weight: 48.2 kg

DRUGS (8)
  1. FUROSEMIDE [Concomitant]
     Route: 048
  2. OXYCODONE HCL [Concomitant]
     Route: 042
  3. OXYCODONE HCL [Concomitant]
     Route: 042
  4. CARBOPLATIN [Suspect]
     Indication: METASTATIC MALIGNANT MELANOMA
     Dosage: DAY 1
     Route: 042
     Dates: start: 20090513, end: 20090513
  5. NAMENDA [Concomitant]
  6. AVASTIN [Suspect]
     Indication: METASTATIC MALIGNANT MELANOMA
     Dosage: DAY 1.
     Route: 042
     Dates: start: 20090513, end: 20090513
  7. CENTRUM [Concomitant]
     Route: 048
  8. PACLITAXEL [Suspect]
     Indication: METASTATIC MALIGNANT MELANOMA
     Dosage: DAYS 1, 8, 15
     Route: 042
     Dates: start: 20090513, end: 20090513

REACTIONS (3)
  - MALIGNANT MELANOMA [None]
  - DISEASE PROGRESSION [None]
  - METASTASES TO LIVER [None]
